FAERS Safety Report 7204167-1 (Version None)
Quarter: 2010Q4

REPORT INFORMATION
  Report Type: 
  Country: None (occurrence: None)
  Receive Date: 20101230
  Receipt Date: 20101124
  Transmission Date: 20110411
  Serious: Yes (Other)
  Sender: FDA-Public Use
  Company Number: IE-BAYER-201038301GPV

PATIENT
  Sex: Female

DRUGS (2)
  1. MIRENA [Suspect]
     Indication: CONTRACEPTION
     Dosage: 20 A?G (DAILY DOSE), CONT, INTRA-UTERINE
     Route: 015
     Dates: start: 20100902, end: 20100902
  2. PONSTAN [Concomitant]
     Indication: ANALGESIC THERAPY
     Route: 048
     Dates: start: 20100902, end: 20100902

REACTIONS (3)
  - EYE SWELLING [None]
  - HYPERSENSITIVITY [None]
  - RASH GENERALISED [None]
